FAERS Safety Report 16947519 (Version 3)
Quarter: 2020Q2

REPORT INFORMATION
  Report Type: Spontaneous
  Country: CA (occurrence: CA)
  Receive Date: 20191022
  Receipt Date: 20200526
  Transmission Date: 20200713
  Serious: Yes (Death, Other)
  Sender: FDA-Public Use
  Company Number: CA-TEVA-2019-CA-1124822

PATIENT
  Sex: Male

DRUGS (10)
  1. VORICONAZOLE. [Suspect]
     Active Substance: VORICONAZOLE
     Indication: CENTRAL NERVOUS SYSTEM FUNGAL INFECTION
     Route: 065
  2. AMPHOTERICIN B. [Suspect]
     Active Substance: AMPHOTERICIN B
     Indication: CENTRAL NERVOUS SYSTEM FUNGAL INFECTION
     Route: 065
  3. DAUNORUBICIN HYDROCHLORIDE FOR INJECTION [Concomitant]
     Active Substance: DAUNORUBICIN HYDROCHLORIDE
     Indication: IMMUNOSUPPRESSION
  4. POSANOL [Suspect]
     Active Substance: POSACONAZOLE
     Indication: CENTRAL NERVOUS SYSTEM FUNGAL INFECTION
     Route: 065
  5. ETOPOSIDE. [Concomitant]
     Active Substance: ETOPOSIDE
     Indication: IMMUNOSUPPRESSION
  6. ETOPOSIDE. [Suspect]
     Active Substance: ETOPOSIDE
     Indication: IMMUNOSUPPRESSION
     Route: 065
  7. CYTARABINE INJECTION [Concomitant]
     Active Substance: CYTARABINE
     Indication: IMMUNOSUPPRESSION
  8. METHYLPREDNISOLONE NOS [Concomitant]
     Active Substance: METHYLPREDNISOLONE
     Indication: IMMUNOSUPPRESSION
  9. CASPOFUNGIN [Suspect]
     Active Substance: CASPOFUNGIN
     Indication: ANTIFUNGAL PROPHYLAXIS
     Route: 065
  10. POSACONAZOLE [Suspect]
     Active Substance: POSACONAZOLE
     Indication: CENTRAL NERVOUS SYSTEM FUNGAL INFECTION
     Route: 065

REACTIONS (3)
  - Product use in unapproved indication [Fatal]
  - Condition aggravated [Fatal]
  - Drug resistance [Fatal]
